FAERS Safety Report 25529402 (Version 3)
Quarter: 2025Q3

REPORT INFORMATION
  Report Type: Spontaneous
  Country: JP (occurrence: JP)
  Receive Date: 20250708
  Receipt Date: 20250818
  Transmission Date: 20251021
  Serious: Yes (Hospitalization, Other)
  Sender: PFIZER
  Company Number: JP-PFIZER INC-202500134016

PATIENT
  Sex: Female

DRUGS (7)
  1. XELJANZ [Suspect]
     Active Substance: TOFACITINIB CITRATE
     Indication: Rheumatoid arthritis
     Dosage: 5 MG, 2X/DAY
     Route: 048
     Dates: start: 20220426, end: 20250702
  2. METHOTREXATE [Suspect]
     Active Substance: METHOTREXATE
     Indication: Rheumatoid arthritis
     Dosage: 9 MG, WEEKLY (3 TIMES A WEEK ON MONDAY MORNING AND EVENING AND TUESDAY MORNING)
     Route: 048
     Dates: start: 20090519, end: 20250628
  3. FOLIC ACID [Concomitant]
     Active Substance: FOLIC ACID
     Indication: Prophylaxis
     Dosage: 5 MG, WEEKLY ON THURSDAY
  4. CELECOXIB [Concomitant]
     Active Substance: CELECOXIB
     Indication: Analgesic therapy
     Dosage: 100 MG, 2X/DAY IN THE MORNING AND EVENING
  5. AMLODIPINE BESYLATE [Concomitant]
     Active Substance: AMLODIPINE BESYLATE
     Indication: Hypertension
     Dosage: 5 MG, DAILY IN THE MORNING
  6. OMEPRAZOLE [Concomitant]
     Active Substance: OMEPRAZOLE
     Indication: Gastric pH decreased
     Dosage: 20 MG, DAILY IN THE MORNING
  7. MENATETRENONE [Concomitant]
     Active Substance: MENATETRENONE
     Indication: Osteoporosis
     Dosage: 45 MG, DAILY (IN THE MORNING, AT NOON, AND IN THE EVENING)

REACTIONS (2)
  - Post procedural infection [Recovered/Resolved]
  - Tooth extraction [Unknown]

NARRATIVE: CASE EVENT DATE: 20250628
